FAERS Safety Report 25227865 (Version 3)
Quarter: 2025Q2

REPORT INFORMATION
  Report Type: Spontaneous
  Country: DE (occurrence: DE)
  Receive Date: 20250423
  Receipt Date: 20250618
  Transmission Date: 20250717
  Serious: Yes (Hospitalization)
  Sender: AMGEN
  Company Number: DE-002147023-NVSC2025DE064414

PATIENT
  Sex: Male
  Weight: 83 kg

DRUGS (2)
  1. AIMOVIG [Suspect]
     Active Substance: ERENUMAB-AOOE
     Indication: Migraine
     Dosage: UNK (140), Q4W
     Route: 058
     Dates: start: 202308, end: 202412
  2. Tempil [Concomitant]
     Indication: Product used for unknown indication
     Route: 065

REACTIONS (3)
  - Pain [Recovering/Resolving]
  - Vertebrobasilar artery dissection [Not Recovered/Not Resolved]
  - Vertebral artery occlusion [Not Recovered/Not Resolved]

NARRATIVE: CASE EVENT DATE: 20241212
